FAERS Safety Report 10042952 (Version 2)
Quarter: 2014Q2

REPORT INFORMATION
  Report Type: Report from Study
  Country: FR (occurrence: FR)
  Receive Date: 20140328
  Receipt Date: 20140522
  Transmission Date: 20141212
  Serious: Yes (Death, Other)
  Sender: FDA-Public Use
  Company Number: FR-ROCHE-1372379

PATIENT
  Age: 59 Year
  Sex: Male

DRUGS (1)
  1. ZELBORAF [Suspect]
     Indication: METASTATIC MALIGNANT MELANOMA
     Route: 065
     Dates: start: 20131203, end: 20140125

REACTIONS (6)
  - Disease progression [Fatal]
  - Metastases to liver [Unknown]
  - Pain [Unknown]
  - Nausea [Recovered/Resolved]
  - Keratosis pilaris [Recovered/Resolved]
  - VIIth nerve paralysis [Unknown]
